FAERS Safety Report 7639712 (Version 3)
Quarter: 2013Q3

REPORT INFORMATION
  Report Type: Spontaneous
  Country: US (occurrence: US)
  Receive Date: 20101026
  Receipt Date: 20130906
  Transmission Date: 20140515
  Serious: Yes (Hospitalization)
  Sender: FDA-Public Use
  Company Number: US-RANBAXY-2010US-38930

PATIENT
  Age: 12 Year
  Sex: Male

DRUGS (2)
  1. IBUPROFEN [Suspect]
     Indication: PRODUCT USED FOR UNKNOWN INDICATION
     Dosage: UNK
     Route: 065
  2. OSELTAMIVIR [Suspect]
     Indication: INFLUENZA
     Dosage: UNK
     Route: 065

REACTIONS (3)
  - Haematemesis [Recovered/Resolved]
  - Petechiae [Unknown]
  - Vomiting [Unknown]
